FAERS Safety Report 15366866 (Version 1)
Quarter: 2018Q3

REPORT INFORMATION
  Report Type: Spontaneous
  Country: US (occurrence: US)
  Receive Date: 20180902
  Receipt Date: 20180902
  Transmission Date: 20181010
  Serious: Yes (Hospitalization, Disabling)
  Sender: FDA-Public Use
  Company Number: None

PATIENT
  Age: 64 Year
  Sex: Female
  Weight: 54 kg

DRUGS (6)
  1. VISTARIL [Concomitant]
     Active Substance: HYDROXYZINE PAMOATE
  2. LIBRIUM [Suspect]
     Active Substance: CHLORDIAZEPOXIDE HYDROCHLORIDE
     Indication: THERAPY CHANGE
     Dosage: ?          QUANTITY:42 CAPSULE(S);?
     Route: 048
     Dates: start: 20180503, end: 20180531
  3. METOPROLOL. [Concomitant]
     Active Substance: METOPROLOL
  4. IBUPROFEN PRN [Concomitant]
  5. PROBIOTICS [Concomitant]
     Active Substance: PROBIOTICS NOS
  6. VITAMIN C [Concomitant]
     Active Substance: ASCORBIC ACID

REACTIONS (5)
  - Fear [None]
  - Paraesthesia [None]
  - Impaired self-care [None]
  - Drug withdrawal syndrome [None]
  - Hyperventilation [None]

NARRATIVE: CASE EVENT DATE: 20180629
